FAERS Safety Report 11096819 (Version 3)
Quarter: 2017Q1

REPORT INFORMATION
  Report Type: Spontaneous
  Country: JP (occurrence: JP)
  Receive Date: 20150507
  Receipt Date: 20170202
  Transmission Date: 20170428
  Serious: Yes (Hospitalization, Other)
  Sender: FDA-Public Use
  Company Number: JP-SA-2015SA058669

PATIENT
  Age: 61 Year
  Sex: Male
  Weight: 76 kg

DRUGS (24)
  1. CAMPTO [Suspect]
     Active Substance: IRINOTECAN
     Indication: PANCREATIC CARCINOMA
     Dosage: DOSE: 115.5MG/M2
     Route: 041
     Dates: start: 20150105, end: 20150105
  2. LEVOFOLINATE [Suspect]
     Active Substance: LEVOLEUCOVORIN CALCIUM
     Indication: PANCREATIC CARCINOMA
     Dosage: FORM IV INFUSION INJECTION?DOSE: 192.5MG/M2
     Route: 041
     Dates: start: 20141203, end: 20141203
  3. 5-FU [Concomitant]
     Active Substance: FLUOROURACIL
     Indication: PANCREATIC CARCINOMA
     Dosage: DOSE:(1848.2 MG/M2/D1-2)
     Route: 041
     Dates: start: 20150202, end: 20150202
  4. LEVOFOLINATE [Suspect]
     Active Substance: LEVOLEUCOVORIN CALCIUM
     Indication: PANCREATIC CARCINOMA
     Dosage: FORM IV INFUSION INJECTION?DOSE: 192.5MG/M2
     Route: 041
     Dates: start: 20150202, end: 20150202
  5. 5-FU [Concomitant]
     Active Substance: FLUOROURACIL
     Indication: PANCREATIC CARCINOMA
     Dosage: DOSE:(1848.2 MG/M2/D1-2)
     Route: 041
     Dates: start: 20141217, end: 20141217
  6. ELPLAT [Suspect]
     Active Substance: OXALIPLATIN
     Indication: PANCREATIC CARCINOMA
     Dosage: DOSE: 82.5MG/M2
     Route: 041
     Dates: start: 20141023, end: 20141023
  7. ELPLAT [Suspect]
     Active Substance: OXALIPLATIN
     Indication: PANCREATIC CARCINOMA
     Dosage: DOSE:66MG/M2
     Route: 041
     Dates: start: 20141203, end: 20141203
  8. ELPLAT [Suspect]
     Active Substance: OXALIPLATIN
     Indication: PANCREATIC CARCINOMA
     Dosage: DOSE: 66MG/M2
     Route: 041
     Dates: start: 20150202, end: 20150202
  9. CAMPTO [Suspect]
     Active Substance: IRINOTECAN
     Indication: PANCREATIC CARCINOMA
     Dosage: DOSE: 148.5MG/M2
     Route: 041
     Dates: start: 20141023, end: 20141023
  10. CAMPTO [Suspect]
     Active Substance: IRINOTECAN
     Indication: PANCREATIC CARCINOMA
     Dosage: DOSE: 115.5MG/M2
     Route: 041
     Dates: start: 20141203, end: 20141203
  11. LEVOFOLINATE [Suspect]
     Active Substance: LEVOLEUCOVORIN CALCIUM
     Indication: PANCREATIC CARCINOMA
     Dosage: FORM IV INFUSION INJECTION?DOSE: 192.5MG/M2
     Route: 041
     Dates: start: 20150105, end: 20150105
  12. ELPLAT [Suspect]
     Active Substance: OXALIPLATIN
     Indication: PANCREATIC CARCINOMA
     Dosage: DOSE: 66MG/M2
     Route: 041
     Dates: start: 20150105, end: 20150105
  13. CAMPTO [Suspect]
     Active Substance: IRINOTECAN
     Indication: PANCREATIC CARCINOMA
     Dosage: DOSE: 115.5MG/M2
     Route: 041
     Dates: start: 20150119, end: 20150119
  14. LEVOFOLINATE [Suspect]
     Active Substance: LEVOLEUCOVORIN CALCIUM
     Indication: PANCREATIC CARCINOMA
     Dosage: FORM IV INFUSION INJECTION?DOSE: 192.5MG/M2
     Route: 041
     Dates: start: 20150119, end: 20150119
  15. 5-FU [Concomitant]
     Active Substance: FLUOROURACIL
     Indication: PANCREATIC CARCINOMA
     Dosage: DOSE:(1848.2 MG/M2/D1-2)
     Route: 041
     Dates: start: 20150105, end: 20150105
  16. 5-FU [Concomitant]
     Active Substance: FLUOROURACIL
     Indication: PANCREATIC CARCINOMA
     Dosage: DOSE:(1848.2 MG/M2/D1-2)
     Route: 041
     Dates: start: 20150119, end: 20150119
  17. CAMPTO [Suspect]
     Active Substance: IRINOTECAN
     Indication: PANCREATIC CARCINOMA
     Dosage: DOSE: 115.5MG/M2
     Route: 041
     Dates: start: 20141217, end: 20141217
  18. CAMPTO [Suspect]
     Active Substance: IRINOTECAN
     Indication: PANCREATIC CARCINOMA
     Dosage: DOSE: 115.5MG/M2
     Route: 041
     Dates: start: 20150202, end: 20150202
  19. LEVOFOLINATE [Suspect]
     Active Substance: LEVOLEUCOVORIN CALCIUM
     Indication: PANCREATIC CARCINOMA
     Dosage: FORM IV INFUSION INJECTION?DOSE: 192.5MG/M2
     Route: 041
     Dates: start: 20141217, end: 20141217
  20. 5-FU [Concomitant]
     Active Substance: FLUOROURACIL
     Indication: PANCREATIC CARCINOMA
     Dosage: DOSE:(2365.2 MG/M2/D1-2)
     Route: 041
     Dates: start: 20141023, end: 20141023
  21. ELPLAT [Suspect]
     Active Substance: OXALIPLATIN
     Indication: PANCREATIC CARCINOMA
     Dosage: DOSE: 66MG/M2
     Route: 041
     Dates: start: 20150119, end: 20150119
  22. ELPLAT [Suspect]
     Active Substance: OXALIPLATIN
     Indication: PANCREATIC CARCINOMA
     Dosage: DOSE: 66MG/M2
     Route: 041
     Dates: start: 20141217, end: 20141217
  23. 5-FU [Concomitant]
     Active Substance: FLUOROURACIL
     Indication: PANCREATIC CARCINOMA
     Dosage: DOSE:(1848.2 MG/M2/D1-2)
     Route: 041
     Dates: start: 20141203, end: 20141203
  24. LEVOFOLINATE [Suspect]
     Active Substance: LEVOLEUCOVORIN CALCIUM
     Indication: PANCREATIC CARCINOMA
     Dosage: FORM IV INFUSION INJECTION?DOSE: 198MG/M2
     Route: 041
     Dates: start: 20141023, end: 20141023

REACTIONS (10)
  - Duodenal ulcer [Unknown]
  - White blood cell count decreased [Unknown]
  - Fatigue [Unknown]
  - Neutrophil count decreased [Unknown]
  - Decreased appetite [Unknown]
  - Nausea [Unknown]
  - Haemoglobin decreased [Unknown]
  - Diarrhoea [Unknown]
  - Palmar-plantar erythrodysaesthesia syndrome [Unknown]
  - Peripheral sensory neuropathy [Unknown]

NARRATIVE: CASE EVENT DATE: 20141104
